FAERS Safety Report 23655445 (Version 1)
Quarter: 2024Q1

REPORT INFORMATION
  Report Type: Report from Study
  Country: US (occurrence: US)
  Receive Date: 20240320
  Receipt Date: 20240320
  Transmission Date: 20240410
  Serious: Yes (Hospitalization, Other)
  Sender: FDA-Public Use
  Company Number: US-ABBVIE-5678617

PATIENT
  Age: 59 Year
  Sex: Female

DRUGS (1)
  1. HUMIRA [Suspect]
     Active Substance: ADALIMUMAB
     Indication: Rheumatoid arthritis
     Route: 058
     Dates: start: 20180613

REACTIONS (3)
  - Chronic obstructive pulmonary disease [Recovering/Resolving]
  - Neoplasm [Unknown]
  - Memory impairment [Unknown]

NARRATIVE: CASE EVENT DATE: 20230313
